FAERS Safety Report 7855147-4 (Version None)
Quarter: 2011Q4

REPORT INFORMATION
  Report Type: 
  Country: None (occurrence: None)
  Receive Date: 20111026
  Receipt Date: 20111011
  Transmission Date: 20120403
  Serious: Yes (Other)
  Sender: FDA-Public Use
  Company Number: RS-WATSON-2011-17009

PATIENT
  Age: 13 Year
  Sex: Female

DRUGS (1)
  1. PREDNISONE [Suspect]
     Indication: PEMPHIGUS
     Dosage: 1MG/KG/DAY

REACTIONS (4)
  - OSTEOPOROSIS [None]
  - COMPRESSION FRACTURE [None]
  - SKIN HYPERPIGMENTATION [None]
  - CUSHING'S SYNDROME [None]
